FAERS Safety Report 19932737 (Version 4)
Quarter: 2022Q1

REPORT INFORMATION
  Report Type: Spontaneous
  Country: RO (occurrence: RO)
  Receive Date: 20211008
  Receipt Date: 20220321
  Transmission Date: 20220423
  Serious: Yes (Other)
  Sender: FDA-Public Use
  Company Number: RO-JNJFOC-20210956950

PATIENT
  Age: 54 Year
  Sex: Male

DRUGS (11)
  1. SPRAVATO [Suspect]
     Active Substance: ESKETAMINE
     Indication: Depression
     Dosage: FIRST 9 WEEKS
     Dates: start: 20210916
  2. SPRAVATO [Suspect]
     Active Substance: ESKETAMINE
     Indication: Major depression
     Dosage: WEEK 10 TO WEEK 18
  3. SPRAVATO [Suspect]
     Active Substance: ESKETAMINE
     Dosage: WEEK 19 TO PRESENT
  4. REMERON [Concomitant]
     Active Substance: MIRTAZAPINE
  5. SERTRALINE HYDROCHLORIDE [Concomitant]
     Active Substance: SERTRALINE HYDROCHLORIDE
  6. LORAZEPAM [Concomitant]
     Active Substance: LORAZEPAM
     Dosage: 2-3 MG/DAY
  7. LORAZEPAM [Concomitant]
     Active Substance: LORAZEPAM
  8. VENLAFAXINE [Concomitant]
     Active Substance: VENLAFAXINE HYDROCHLORIDE
     Dosage: MORNING
  9. VENLAFAXINE [Concomitant]
     Active Substance: VENLAFAXINE HYDROCHLORIDE
     Dosage: MORNING
  10. VENLAFAXINE [Concomitant]
     Active Substance: VENLAFAXINE HYDROCHLORIDE
     Dosage: MORNING
  11. MIRTAZAPINE [Concomitant]
     Active Substance: MIRTAZAPINE
     Dosage: EVENING

REACTIONS (10)
  - Hallucination, visual [Unknown]
  - Anxiety [Recovered/Resolved]
  - Tinnitus [Recovered/Resolved]
  - Hypertension [Unknown]
  - Head titubation [Recovering/Resolving]
  - Insomnia [Unknown]
  - Fatigue [Unknown]
  - Insomnia [Unknown]
  - Derealisation [Recovered/Resolved]
  - Dissociative disorder [Recovered/Resolved]

NARRATIVE: CASE EVENT DATE: 20210101
